FAERS Safety Report 20611614 (Version 2)
Quarter: 2022Q1

REPORT INFORMATION
  Report Type: Spontaneous
  Country: JP (occurrence: JP)
  Receive Date: 20220318
  Receipt Date: 20220328
  Transmission Date: 20220424
  Serious: Yes (Other)
  Sender: FDA-Public Use
  Company Number: JP-PFIZER INC-202200420653

PATIENT
  Age: 87 Year
  Sex: Female

DRUGS (2)
  1. SOLANAX [Suspect]
     Active Substance: ALPRAZOLAM
     Dosage: 1.2 MG, DAILY(DIVIDIED INTO 3 TIMES)
     Route: 048
  2. ALPRAZOLAM [Suspect]
     Active Substance: ALPRAZOLAM
     Dosage: UNK, 3X/DAY
     Route: 048

REACTIONS (7)
  - Renal impairment [Unknown]
  - Dysarthria [Unknown]
  - Tongue disorder [Unknown]
  - Decreased activity [Unknown]
  - Decreased appetite [Unknown]
  - Distractibility [Unknown]
  - Apathy [Unknown]
